FAERS Safety Report 20386699 (Version 1)
Quarter: 2022Q1

REPORT INFORMATION
  Report Type: Spontaneous
  Country: None (occurrence: GB)
  Receive Date: 20220127
  Receipt Date: 20220127
  Transmission Date: 20220423
  Serious: Yes (Other)
  Sender: FDA-Public Use
  Company Number: GB-Canton Laboratories, LLC-2124374

PATIENT
  Age: 62 Year
  Sex: Male

DRUGS (4)
  1. NAPROSYN [Suspect]
     Active Substance: NAPROXEN
     Indication: Analgesic therapy
     Route: 048
     Dates: start: 20190218
  2. COSENTYX [Suspect]
     Active Substance: SECUKINUMAB
     Route: 058
     Dates: start: 20190218
  3. COCODAMOL [Concomitant]
     Active Substance: ACETAMINOPHEN\CODEINE PHOSPHATE
  4. LANSOPRAZOLE [Concomitant]
     Active Substance: LANSOPRAZOLE

REACTIONS (6)
  - Influenza like illness [Recovered/Resolved]
  - Pain [Unknown]
  - Anosmia [Unknown]
  - Headache [Unknown]
  - Product dose omission issue [Unknown]
  - Ageusia [Unknown]

NARRATIVE: CASE EVENT DATE: 20200330
